FAERS Safety Report 5351090-3 (Version None)
Quarter: 2007Q2

REPORT INFORMATION
  Report Type: 
  Country: None (occurrence: None)
  Receive Date: 20070608
  Receipt Date: 20070530
  Transmission Date: 20071010
  Serious: Yes (Disabling)
  Sender: FDA-Public Use
  Company Number: FR-PFIZER INC-2007028260

PATIENT
  Sex: Female
  Weight: 62 kg

DRUGS (1)
  1. SOMAVERT [Suspect]
     Indication: ACROMEGALY
     Dosage: DAILY DOSE:10MG-FREQ:DAILY
     Route: 058
     Dates: start: 20060919, end: 20070201

REACTIONS (1)
  - ASTHENIA [None]
